FAERS Safety Report 21734232 (Version 1)
Quarter: 2022Q4

REPORT INFORMATION
  Report Type: Report from Study
  Country: BR (occurrence: BR)
  Receive Date: 20221215
  Receipt Date: 20221215
  Transmission Date: 20230113
  Serious: Yes (Other)
  Sender: FDA-Public Use
  Company Number: BR-002147023-NVSC2022BR287148

PATIENT
  Age: 90 Year
  Sex: Male

DRUGS (1)
  1. ENTRESTO [Suspect]
     Active Substance: SACUBITRIL\VALSARTAN
     Indication: Product used for unknown indication
     Dosage: UNK
     Route: 065

REACTIONS (10)
  - Dementia Alzheimer^s type [Unknown]
  - COVID-19 [Unknown]
  - Hypertension [Unknown]
  - Fall [Unknown]
  - Head injury [Unknown]
  - Face injury [Unknown]
  - Oromandibular dystonia [Unknown]
  - Aphasia [Recovered/Resolved with Sequelae]
  - Dysarthria [Unknown]
  - Memory impairment [Recovered/Resolved with Sequelae]
